FAERS Safety Report 6545068-1 (Version None)
Quarter: 2010Q1

REPORT INFORMATION
  Report Type: 
  Country: None (occurrence: None)
  Receive Date: 20100121
  Receipt Date: 20100119
  Transmission Date: 20100710
  Serious: Yes (Other)
  Sender: FDA-Public Use
  Company Number: DE-SANOFI-AVENTIS-2009SA006569

PATIENT
  Age: 69 Year
  Sex: Male
  Weight: 75 kg

DRUGS (7)
  1. OXALIPLATIN [Suspect]
     Indication: COLORECTAL CANCER METASTATIC
     Route: 041
     Dates: start: 20090401, end: 20090401
  2. OXALIPLATIN [Suspect]
     Route: 041
     Dates: start: 20090907, end: 20090907
  3. 5-FU [Concomitant]
     Indication: COLORECTAL CANCER METASTATIC
     Route: 041
     Dates: start: 20090401, end: 20090401
  4. 5-FU [Concomitant]
     Route: 041
     Dates: start: 20090101, end: 20090101
  5. FOLINIC ACID [Concomitant]
     Indication: COLORECTAL CANCER METASTATIC
     Route: 041
     Dates: start: 20090401, end: 20090401
  6. FOLINIC ACID [Concomitant]
     Route: 041
     Dates: start: 20090101, end: 20090101
  7. DEXAMETHASONE [Concomitant]
     Indication: PREMEDICATION
     Route: 040
     Dates: start: 20090401

REACTIONS (7)
  - COLD SWEAT [None]
  - ERYTHEMA [None]
  - FEELING ABNORMAL [None]
  - FLUSHING [None]
  - LOSS OF CONSCIOUSNESS [None]
  - NAUSEA [None]
  - SHOCK [None]
